FAERS Safety Report 12217524 (Version 2)
Quarter: 2016Q2

REPORT INFORMATION
  Report Type: Spontaneous
  Country: IT (occurrence: IT)
  Receive Date: 20160329
  Receipt Date: 20160415
  Transmission Date: 20160815
  Serious: Yes (Death)
  Sender: FDA-Public Use
  Company Number: IT-ROCHE-1732243

PATIENT
  Age: 52 Year
  Sex: Female

DRUGS (6)
  1. SOLDESAM [Concomitant]
     Active Substance: DEXAMETHASONE
  2. PANTORC [Concomitant]
     Active Substance: PANTOPRAZOLE SODIUM
  3. CLEXANE [Concomitant]
     Active Substance: ENOXAPARIN SODIUM
     Dosage: 4000 IU AXA / 0.4 ML 6 X 0.4 ML PRE-FILLED SYRINGE
     Route: 065
  4. ALBUMIN [Concomitant]
     Active Substance: ALBUMIN HUMAN
  5. KEPPRA [Concomitant]
     Active Substance: LEVETIRACETAM
  6. AVASTIN [Suspect]
     Active Substance: BEVACIZUMAB
     Indication: GLIOBLASTOMA MULTIFORME
     Dosage: 1 X 400 MG VIAL
     Route: 041
     Dates: start: 20160120, end: 20160120

REACTIONS (5)
  - Pancytopenia [Fatal]
  - Off label use [Unknown]
  - Anaemia [Fatal]
  - Disseminated intravascular coagulation [Fatal]
  - Rectal ulcer haemorrhage [Fatal]

NARRATIVE: CASE EVENT DATE: 20160203
